FAERS Safety Report 9692813 (Version 2)
Quarter: 2013Q4

REPORT INFORMATION
  Report Type: Spontaneous
  Country: DE (occurrence: DE)
  Receive Date: 20131118
  Receipt Date: 20131128
  Transmission Date: 20140711
  Serious: Yes (Death, Hospitalization)
  Sender: FDA-Public Use
  Company Number: DE-JNJFOC-20131108144

PATIENT
  Age: 73 Year
  Sex: Female
  Weight: 90 kg

DRUGS (5)
  1. XARELTO [Suspect]
     Indication: PRODUCT USED FOR UNKNOWN INDICATION
     Route: 048
     Dates: start: 20121018
  2. TORASEMID [Concomitant]
     Route: 065
  3. ENALAPRIL [Concomitant]
     Route: 065
  4. SEVIKAR [Concomitant]
     Route: 065
  5. VESIKUR [Concomitant]
     Route: 065

REACTIONS (3)
  - Hypertensive crisis [Fatal]
  - Cardiac failure [Fatal]
  - Asthenia [Unknown]
